FAERS Safety Report 25864527 (Version 1)
Quarter: 2025Q3

REPORT INFORMATION
  Report Type: Spontaneous
  Country: US (occurrence: US)
  Receive Date: 20250930
  Receipt Date: 20250930
  Transmission Date: 20251020
  Serious: No
  Sender: BAYER HEALTHCARE LLC
  Company Number: US-BAYER-2025A128872

PATIENT
  Age: 53 Year
  Sex: Female
  Weight: 52.154 kg

DRUGS (20)
  1. CLARITIN [Suspect]
     Active Substance: LORATADINE
     Indication: Pulmonary arterial hypertension
     Route: 048
  2. CLARITIN [Suspect]
     Active Substance: LORATADINE
     Indication: Rhinorrhoea
  3. ORENITRAM [Suspect]
     Active Substance: TREPROSTINIL
     Indication: Pulmonary arterial hypertension
  4. ORENITRAM [Suspect]
     Active Substance: TREPROSTINIL
     Indication: Rhinorrhoea
     Route: 048
     Dates: start: 20141218
  5. NEXIUM [Concomitant]
     Active Substance: ESOMEPRAZOLE MAGNESIUM
  6. Ensure high protein [Concomitant]
  7. MUCINEX D [Concomitant]
     Active Substance: GUAIFENESIN\PSEUDOEPHEDRINE HYDROCHLORIDE
  8. LOPERAMIDE [Concomitant]
     Active Substance: LOPERAMIDE
  9. ALBUTEROL SULFATE [Concomitant]
     Active Substance: ALBUTEROL SULFATE
  10. SILDENAFIL CITRATE [Concomitant]
     Active Substance: SILDENAFIL CITRATE
  11. CELLCEPT [Concomitant]
     Active Substance: MYCOPHENOLATE MOFETIL
  12. ACETAMINOPHEN [Concomitant]
     Active Substance: ACETAMINOPHEN
  13. AMBRISENTAN [Concomitant]
     Active Substance: AMBRISENTAN
  14. CYTOMEL [Concomitant]
     Active Substance: LIOTHYRONINE SODIUM
  15. SPIRONOLACTONE [Concomitant]
     Active Substance: SPIRONOLACTONE
  16. TORSEMIDE [Concomitant]
     Active Substance: TORSEMIDE
  17. ZYRTEC [Concomitant]
     Active Substance: CETIRIZINE HYDROCHLORIDE
  18. MINERALS [Concomitant]
     Active Substance: MINERALS
  19. PROTEIN [Concomitant]
     Active Substance: PROTEIN
  20. VITAMINS [Concomitant]
     Active Substance: VITAMINS

REACTIONS (3)
  - Rhinorrhoea [Not Recovered/Not Resolved]
  - Nasal dryness [Recovered/Resolved]
  - Therapy non-responder [None]
